FAERS Safety Report 19151005 (Version 1)
Quarter: 2021Q2

REPORT INFORMATION
  Report Type: Spontaneous
  Country: TR (occurrence: PK)
  Receive Date: 20210419
  Receipt Date: 20210419
  Transmission Date: 20210717
  Serious: Yes (Hospitalization, Other)
  Sender: FDA-Public Use
  Company Number: TR-TWI PHARMACEUTICAL, INC-2021SCTW000027

PATIENT

DRUGS (4)
  1. DICLOFENAC SODIUM TOPICAL SOLUTION [Suspect]
     Active Substance: DICLOFENAC SODIUM
     Indication: GUILLAIN-BARRE SYNDROME
  2. GABAPENTIN. [Concomitant]
     Active Substance: GABAPENTIN
     Indication: PAIN IN EXTREMITY
     Dosage: 600 MG, TID
     Route: 065
  3. DICLOFENAC SODIUM TOPICAL SOLUTION [Suspect]
     Active Substance: DICLOFENAC SODIUM
     Indication: PAIN IN EXTREMITY
     Dosage: 50 MG, BID
     Route: 065
  4. AMLODIPINE [Concomitant]
     Active Substance: AMLODIPINE BESYLATE
     Indication: HYPERTENSION
     Dosage: 5 MG, OD
     Route: 065

REACTIONS (3)
  - Oliguria [Recovering/Resolving]
  - Metabolic acidosis [Unknown]
  - Tubulointerstitial nephritis [Recovering/Resolving]
